FAERS Safety Report 6919317-1 (Version None)
Quarter: 2010Q3

REPORT INFORMATION
  Report Type: 
  Country: None (occurrence: None)
  Receive Date: 20100811
  Receipt Date: 20100803
  Transmission Date: 20110219
  Serious: Yes (Other)
  Sender: FDA-Public Use
  Company Number: A0874650A

PATIENT
  Sex: Female
  Weight: 54 kg

DRUGS (3)
  1. SERETIDE [Suspect]
     Indication: ASTHMA
     Dosage: 1PUFF IN THE MORNING
     Route: 055
     Dates: start: 20090701
  2. ALBUTEROL SULFATE AUTOHALER [Concomitant]
     Dosage: 4MG PER DAY
     Dates: start: 19910101
  3. PREDNISONE [Concomitant]
     Dosage: 20MG PER DAY
     Dates: start: 19910101

REACTIONS (1)
  - ASTHMA [None]
